FAERS Safety Report 24394475 (Version 1)
Quarter: 2024Q4

REPORT INFORMATION
  Report Type: Spontaneous
  Country: US (occurrence: US)
  Receive Date: 20241004
  Receipt Date: 20241004
  Transmission Date: 20250114
  Serious: No
  Sender: BIOGEN
  Company Number: US-BIOGEN-2024BI01246485

PATIENT
  Sex: Female
  Weight: 45 kg

DRUGS (1)
  1. SKYCLARYS [Suspect]
     Active Substance: OMAVELOXOLONE
     Indication: Friedreich^s ataxia
     Route: 050
     Dates: start: 20231023

REACTIONS (7)
  - Nasopharyngitis [Recovered/Resolved]
  - Dyspepsia [Not Recovered/Not Resolved]
  - Alopecia [Not Recovered/Not Resolved]
  - Abdominal pain upper [Not Recovered/Not Resolved]
  - Hepatic enzyme increased [Unknown]
  - Nausea [Unknown]
  - Vomiting [Unknown]

NARRATIVE: CASE EVENT DATE: 20230101
